FAERS Safety Report 4567852-6 (Version None)
Quarter: 2005Q1

REPORT INFORMATION
  Report Type: 
  Country: None (occurrence: None)
  Receive Date: 20050202
  Receipt Date: 20041103
  Transmission Date: 20050727
  Serious: No
  Sender: FDA-Public Use
  Company Number: US-GLAXOSMITHKLINE-A0532568A

PATIENT
  Age: 59 Year
  Sex: Female

DRUGS (2)
  1. AVANDAMET [Suspect]
     Route: 048
  2. GLUCOTROL [Concomitant]

REACTIONS (3)
  - CHEST DISCOMFORT [None]
  - DIZZINESS [None]
  - MYALGIA [None]
